FAERS Safety Report 12393607 (Version 1)
Quarter: 2016Q2

REPORT INFORMATION
  Report Type: Spontaneous
  Country: US (occurrence: None)
  Receive Date: 20160520
  Receipt Date: 20160520
  Transmission Date: 20160815
  Serious: Yes (Hospitalization)
  Sender: FDA-Public Use
  Company Number: None

PATIENT
  Age: 31 Year
  Sex: Female
  Weight: 56.7 kg

DRUGS (4)
  1. VITAMIN D [Concomitant]
     Active Substance: CHOLECALCIFEROL
  2. CEPHALEXIN. [Suspect]
     Active Substance: CEPHALEXIN
     Indication: PSORIASIS
     Route: 048
     Dates: start: 20160426, end: 20160511
  3. KLOPNOPIN [Concomitant]
  4. AMBIEN [Concomitant]
     Active Substance: ZOLPIDEM TARTRATE

REACTIONS (1)
  - Seizure [None]

NARRATIVE: CASE EVENT DATE: 20160511
